FAERS Safety Report 9177480 (Version 4)
Quarter: 2014Q2

REPORT INFORMATION
  Report Type: Report from Study
  Country: GR (occurrence: GR)
  Receive Date: 20130321
  Receipt Date: 20140504
  Transmission Date: 20141212
  Serious: Yes (Other)
  Sender: FDA-Public Use
  Company Number: GR-US-EMD SERONO, INC.-7199627

PATIENT
  Age: 56 Year
  Sex: Male

DRUGS (6)
  1. REBIF [Suspect]
     Indication: MULTIPLE SCLEROSIS
     Route: 058
     Dates: start: 201011, end: 20130410
  2. REBIF [Suspect]
     Route: 058
     Dates: start: 20130411
  3. CARVEDILOL [Concomitant]
     Indication: HYPERTENSION
     Dosage: ONE TABLET TWICE DAILY
     Route: 048
     Dates: start: 2009
  4. CARVEDILOL [Concomitant]
     Indication: MYOCARDIAL INFARCTION
  5. LEPUR [Concomitant]
     Indication: HYPERTENSION
     Route: 048
     Dates: start: 2009
  6. LEPUR [Concomitant]
     Indication: MYOCARDIAL INFARCTION

REACTIONS (6)
  - Duodenal ulcer [Recovered/Resolved]
  - Lipoma [Not Recovered/Not Resolved]
  - Balance disorder [Recovered/Resolved]
  - Fall [Unknown]
  - Aspartate aminotransferase increased [Recovering/Resolving]
  - Alanine aminotransferase increased [Recovering/Resolving]
